FAERS Safety Report 21637719 (Version 1)
Quarter: 2022Q4

REPORT INFORMATION
  Report Type: Spontaneous
  Country: US (occurrence: US)
  Receive Date: 20221124
  Receipt Date: 20221124
  Transmission Date: 20230112
  Serious: Yes (Hospitalization)
  Sender: FDA-Public Use
  Company Number: US-BRISTOL-MYERS SQUIBB COMPANY-2022-142721

PATIENT
  Age: 84 Year
  Sex: Male
  Weight: 73.02 kg

DRUGS (1)
  1. REVLIMID [Suspect]
     Active Substance: LENALIDOMIDE
     Indication: Myelodysplastic syndrome
     Dosage: 21D OF 28D CYCLE
     Route: 048
     Dates: start: 20220801

REACTIONS (3)
  - Bronchitis [Unknown]
  - Haemoglobin decreased [Unknown]
  - Dehydration [Unknown]
